FAERS Safety Report 7790477 (Version 3)
Quarter: 2013Q2

REPORT INFORMATION
  Report Type: Spontaneous
  Country: US (occurrence: None)
  Receive Date: 20101126
  Receipt Date: 20120517
  Transmission Date: 20140414
  Serious: Yes (Other)
  Sender: FDA-Public Use
  Company Number: WAES 1008USA04171

PATIENT
  Age: 72 Year
  Sex: Female
  Weight: 63.05 kg

DRUGS (2)
  1. FOSAMAX PLUS D [Suspect]
     Indication: OSTEOPOROSIS
     Dosage: 2800 IU/WKY/PO
     Route: 048
     Dates: start: 200801, end: 201005
  2. ALENDRONATE SODIUM [Suspect]
     Indication: PRODUCT USED FOR UNKNOWN INDICATION
     Dosage: 70 MG/WKY
     Dates: start: 20090120

REACTIONS (18)
  - OSTEONECROSIS OF JAW [None]
  - DIVERTICULITIS [None]
  - ASTHMA [None]
  - CELLULITIS [None]
  - DENTAL CARIES [None]
  - PALPITATIONS [None]
  - OSTEOPENIA [None]
  - EYE ALLERGY [None]
  - INTERVERTEBRAL DISC DEGENERATION [None]
  - ROAD TRAFFIC ACCIDENT [None]
  - NOCTURIA [None]
  - CHRONIC OBSTRUCTIVE PULMONARY DISEASE [None]
  - Large intestine polyp [None]
  - SPINAL OSTEOARTHRITIS [None]
  - URINARY TRACT INFECTION [None]
  - TOOTH DISORDER [None]
  - SPINAL MENINGEAL CYST [None]
  - MITRAL VALVE INCOMPETENCE [None]
